FAERS Safety Report 9885592 (Version 1)
Quarter: 2014Q1

REPORT INFORMATION
  Report Type: Spontaneous
  Country: US (occurrence: US)
  Receive Date: 20140210
  Receipt Date: 20140210
  Transmission Date: 20141002
  Serious: No
  Sender: FDA-Public Use
  Company Number: US-GILEAD-2011-0047370

PATIENT
  Age: 63 Year
  Sex: Female

DRUGS (1)
  1. VIREAD [Suspect]
     Indication: HEPATITIS B
     Dosage: 300 MG, QD
     Dates: start: 2009

REACTIONS (4)
  - Hepatic lesion [Unknown]
  - Haemangioma [Unknown]
  - Hepatic cyst [Unknown]
  - Hepatic steatosis [Unknown]
